FAERS Safety Report 13672235 (Version 2)
Quarter: 2017Q3

REPORT INFORMATION
  Report Type: Report from Study
  Country: JP (occurrence: JP)
  Receive Date: 20170620
  Receipt Date: 20170701
  Transmission Date: 20171127
  Serious: Yes (Death, Other)
  Sender: FDA-Public Use
  Company Number: JP-AMGEN-JPNCT2017035375

PATIENT
  Age: 62 Year
  Sex: Male
  Weight: 64.4 kg

DRUGS (13)
  1. OPSO [Concomitant]
     Active Substance: MORPHINE HYDROCHLORIDE
     Indication: CANCER PAIN
     Dosage: UNK
     Route: 048
     Dates: start: 20170508, end: 20170511
  2. 5-FU [Concomitant]
     Active Substance: FLUOROURACIL
     Indication: COLON CANCER
     Dosage: 650 MG, Q2WEEKS
     Route: 040
     Dates: start: 20170123, end: 20170410
  3. PANITUMUMAB [Suspect]
     Active Substance: PANITUMUMAB
     Indication: COLON CANCER
     Dosage: 380 MG, Q2WK
     Route: 041
     Dates: start: 20170123, end: 20170424
  4. CALCIUM LEVOFOLINATE [Concomitant]
     Active Substance: LEVOLEUCOVORIN CALCIUM
     Indication: COLON CANCER
     Dosage: 325 MG, Q2WEEKS
     Route: 041
     Dates: start: 20170123, end: 20170410
  5. ULCERLMIN [Concomitant]
     Active Substance: SUCRALFATE
     Indication: THROAT IRRITATION
     Dosage: 10 MG, TID
     Route: 048
     Dates: start: 20170130, end: 20170511
  6. LANSOPRAZOLE. [Concomitant]
     Active Substance: LANSOPRAZOLE
     Indication: PROPHYLAXIS AGAINST GASTROINTESTINAL ULCER
     Dosage: 30 MG, QD
     Route: 048
     Dates: start: 20170508, end: 20170511
  7. POLAPREZINC [Concomitant]
     Active Substance: POLAPREZINC
     Indication: PROPHYLAXIS AGAINST GASTROINTESTINAL ULCER
     Dosage: 75 MG, BID
     Route: 048
     Dates: start: 20170508, end: 20170511
  8. PREDONINE [Concomitant]
     Active Substance: PREDNISOLONE
     Indication: GENERAL PHYSICAL HEALTH DETERIORATION
     Dosage: 5 MG, QD
     Route: 048
     Dates: start: 20170508, end: 20170511
  9. CODEINE PHOSPHATE [Concomitant]
     Active Substance: CODEINE PHOSPHATE
     Indication: DYSPNOEA
     Dosage: 0.2 G, TID
     Route: 048
     Dates: start: 20170508, end: 20170511
  10. MEDICON                            /00048102/ [Concomitant]
     Active Substance: DEXTROMETHORPHAN HYDROBROMIDE
     Indication: COUGH
     Dosage: 0.3 G, QID
     Route: 048
     Dates: start: 20170508, end: 20170511
  11. CALCIUM LEVOFOLINATE [Concomitant]
     Active Substance: LEVOLEUCOVORIN CALCIUM
     Dosage: 325 MG, Q2WEEKS
     Route: 041
     Dates: start: 20170123, end: 20170424
  12. OXALIPLATIN. [Concomitant]
     Active Substance: OXALIPLATIN
     Indication: COLON CANCER
     Dosage: 140 MG, Q2WEEKS
     Route: 041
     Dates: start: 20170123, end: 20170410
  13. 5-FU [Concomitant]
     Active Substance: FLUOROURACIL
     Dosage: 4150 MG, Q2WEEKS
     Route: 041
     Dates: start: 20170123, end: 20170410

REACTIONS (9)
  - Paronychia [Unknown]
  - Fatigue [Unknown]
  - Stomatitis [Unknown]
  - Malaise [Unknown]
  - Colon cancer [Fatal]
  - Pigmentation disorder [Unknown]
  - Neutrophil count decreased [Recovered/Resolved]
  - Peripheral sensory neuropathy [Unknown]
  - Decreased appetite [Unknown]

NARRATIVE: CASE EVENT DATE: 20170523
